FAERS Safety Report 4984420-2 (Version None)
Quarter: 2006Q2

REPORT INFORMATION
  Report Type: 
  Country: None (occurrence: None)
  Receive Date: 20060427
  Receipt Date: 20060421
  Transmission Date: 20061013
  Serious: Yes (Death)
  Sender: FDA-Public Use
  Company Number: US-JNJFOC-20060404959

PATIENT
  Age: 8 Month
  Sex: Male

DRUGS (2)
  1. CHILDREN'S TYLENOL PLUS COLD AND COUGH ORAL [Suspect]
  2. CHILDREN'S TYLENOL PLUS COLD AND COUGH ORAL [Suspect]

REACTIONS (2)
  - ASPHYXIA [None]
  - DRUG TOXICITY [None]
